FAERS Safety Report 19692489 (Version 1)
Quarter: 2021Q3

REPORT INFORMATION
  Report Type: Report from Study
  Country: US (occurrence: US)
  Receive Date: 20210812
  Receipt Date: 20210812
  Transmission Date: 20211014
  Serious: Yes (Hospitalization)
  Sender: FDA-Public Use
  Company Number: US-HORIZON THERAPEUTICS-HZN-2021-002605

PATIENT

DRUGS (2)
  1. RAVICTI [Suspect]
     Active Substance: GLYCEROL PHENYLBUTYRATE
     Dosage: UNK
     Dates: start: 20210513
  2. RAVICTI [Suspect]
     Active Substance: GLYCEROL PHENYLBUTYRATE
     Indication: HYPERAMMONAEMIA
     Dosage: UNK
     Route: 065
     Dates: start: 20210428

REACTIONS (5)
  - Anaemia [Recovered/Resolved]
  - Neutrophil count decreased [Not Recovered/Not Resolved]
  - Neutropenia [Not Recovered/Not Resolved]
  - Hyponatraemia [Recovered/Resolved]
  - Thrombocytopenia [Not Recovered/Not Resolved]
